FAERS Safety Report 7560192-2 (Version None)
Quarter: 2011Q2

REPORT INFORMATION
  Report Type: 
  Country: None (occurrence: None)
  Receive Date: 20110621
  Receipt Date: 20110603
  Transmission Date: 20111010
  Serious: Yes (Hospitalization)
  Sender: FDA-Public Use
  Company Number: B0699808A

PATIENT
  Age: 59 Year
  Sex: Female
  Weight: 96.4 kg

DRUGS (7)
  1. VASOTEC [Concomitant]
  2. GLUCOVANCE [Concomitant]
  3. AVAPRO [Concomitant]
  4. PROVERA [Concomitant]
  5. PRAVACHOL [Concomitant]
  6. ZOCOR [Concomitant]
  7. AVANDIA [Suspect]
     Indication: DIABETES MELLITUS
     Dosage: 4MG PER DAY
     Route: 048
     Dates: start: 20030321, end: 20070401

REACTIONS (2)
  - MYOCARDIAL INFARCTION [None]
  - MYOCARDIAL ISCHAEMIA [None]
